FAERS Safety Report 10152751 (Version 1)
Quarter: 2014Q2

REPORT INFORMATION
  Report Type: Spontaneous
  Country: AU (occurrence: AU)
  Receive Date: 20140505
  Receipt Date: 20140505
  Transmission Date: 20141212
  Serious: Yes (Other)
  Sender: FDA-Public Use
  Company Number: AU-GLAXOSMITHKLINE-B0989847A

PATIENT
  Age: 30 Year
  Sex: Female

DRUGS (1)
  1. NICABATE P PATCH [Suspect]
     Indication: DRUG WITHDRAWAL MAINTENANCE THERAPY
     Dosage: 21MG UNKNOWN
     Route: 062
     Dates: start: 20140203, end: 20140203

REACTIONS (2)
  - Loss of consciousness [Recovered/Resolved]
  - Malaise [Recovered/Resolved]
